FAERS Safety Report 5712123-5 (Version None)
Quarter: 2008Q2

REPORT INFORMATION
  Report Type: 
  Country: None (occurrence: None)
  Receive Date: 20080418
  Receipt Date: 20080407
  Transmission Date: 20081010
  Serious: Yes (Other)
  Sender: FDA-Public Use
  Company Number: 2008AP000818

PATIENT
  Age: 85 Year
  Sex: Male

DRUGS (8)
  1. LISINOPRIL [Suspect]
  2. LEVOTHYROXINE SODIUM [Concomitant]
  3. ACETYLSALICYLIC ACID SRT [Concomitant]
  4. ALLOPURINOL [Concomitant]
  5. ATENOLOL [Concomitant]
  6. DOXEPIN HCL [Concomitant]
  7. FOLIC ACID [Concomitant]
  8. CYANOCOBALAMIN [Concomitant]

REACTIONS (5)
  - DERMATITIS EXFOLIATIVE [None]
  - EOSINOPHILIA [None]
  - HYPERKERATOSIS PALMARIS AND PLANTARIS [None]
  - PERIVASCULAR DERMATITIS [None]
  - SKIN FISSURES [None]
